FAERS Safety Report 25357304 (Version 2)
Quarter: 2025Q4

REPORT INFORMATION
  Report Type: Spontaneous
  Country: US (occurrence: US)
  Receive Date: 20250526
  Receipt Date: 20251109
  Transmission Date: 20260118
  Serious: Yes (Hospitalization)
  Sender: SANOFI AVENTIS
  Company Number: US-SA-2025SA148999

PATIENT
  Age: 56 Year
  Sex: Male

DRUGS (1)
  1. REZUROCK [Suspect]
     Active Substance: BELUMOSUDIL
     Indication: Chronic graft versus host disease
     Dosage: 200 MG, QD
     Route: 048
     Dates: start: 20240419

REACTIONS (5)
  - Orthostatic hypotension [Unknown]
  - Drug hypersensitivity [Unknown]
  - Depression [Unknown]
  - Asthenia [Unknown]
  - Fatigue [Unknown]
